FAERS Safety Report 6624477-6 (Version None)
Quarter: 2010Q1

REPORT INFORMATION
  Report Type: 
  Country: None (occurrence: None)
  Receive Date: 20100310
  Receipt Date: 20091021
  Transmission Date: 20100710
  Serious: No
  Sender: FDA-Public Use
  Company Number: US-BIOGENIDEC-2009BI033865

PATIENT
  Age: 37 Year
  Sex: Female

DRUGS (3)
  1. AVONEX [Suspect]
     Indication: MULTIPLE SCLEROSIS
     Route: 030
     Dates: start: 20010101, end: 20040101
  2. AVONEX [Suspect]
     Route: 030
     Dates: start: 20050101, end: 20080101
  3. AVONEX [Suspect]
     Route: 030
     Dates: start: 20080801

REACTIONS (2)
  - COUGH [None]
  - INFLUENZA [None]
